FAERS Safety Report 20553062 (Version 5)
Quarter: 2022Q2

REPORT INFORMATION
  Report Type: Report from Study
  Country: US (occurrence: US)
  Receive Date: 20220304
  Receipt Date: 20220504
  Transmission Date: 20220721
  Serious: Yes (Other)
  Sender: FDA-Public Use
  Company Number: US-GILEAD-2022-0572059

PATIENT
  Age: 64 Year
  Sex: Female
  Weight: 64.853 kg

DRUGS (3)
  1. AMBRISENTAN [Suspect]
     Active Substance: AMBRISENTAN
     Indication: Pulmonary hypertension
     Dosage: 10 MG, QD
     Route: 048
     Dates: start: 20210714
  2. UPTRAVI [Concomitant]
     Active Substance: SELEXIPAG
  3. SILDENAFIL [Concomitant]
     Active Substance: SILDENAFIL

REACTIONS (7)
  - Coronary artery disease [Unknown]
  - Diarrhoea [Unknown]
  - Increased tendency to bruise [Unknown]
  - Perineal cyst [Unknown]
  - Dizziness [Unknown]
  - Wheezing [Unknown]
  - Hypoxia [Unknown]
